FAERS Safety Report 24462437 (Version 2)
Quarter: 2024Q4

REPORT INFORMATION
  Report Type: Spontaneous
  Country: US (occurrence: US)
  Receive Date: 20241018
  Receipt Date: 20241220
  Transmission Date: 20250114
  Serious: No
  Sender: UCB
  Company Number: US-UCBSA-2024038899

PATIENT
  Sex: Male
  Weight: 99.79 kg

DRUGS (2)
  1. BIMZELX [Suspect]
     Active Substance: BIMEKIZUMAB-BKZX
     Indication: Psoriasis
     Dosage: 320 MILLIGRAM, EV 8 WEEKS
     Route: 058
  2. BIMZELX [Suspect]
     Active Substance: BIMEKIZUMAB-BKZX
     Indication: Psoriasis
     Dosage: 320 MILLIGRAM, EV 8 WEEKS (2 PENS) AS DIRECTED
     Route: 058
     Dates: start: 202408

REACTIONS (4)
  - Pruritus [Unknown]
  - Lip dry [Unknown]
  - Oral candidiasis [Unknown]
  - Oral infection [Unknown]

NARRATIVE: CASE EVENT DATE: 20240101
